FAERS Safety Report 18244553 (Version 1)
Quarter: 2020Q3

REPORT INFORMATION
  Report Type: Spontaneous
  Country: ES (occurrence: ES)
  Receive Date: 20200909
  Receipt Date: 20200909
  Transmission Date: 20201103
  Serious: Yes (Other)
  Sender: FDA-Public Use
  Company Number: ES-PFIZER INC-2020343893

PATIENT
  Age: 30 Year
  Sex: Male

DRUGS (8)
  1. XELJANZ [Suspect]
     Active Substance: TOFACITINIB CITRATE
     Indication: COLITIS ULCERATIVE
     Dosage: 10 MG, 2X/DAY
     Route: 048
     Dates: start: 20200717
  2. PREDNISONE. [Concomitant]
     Active Substance: PREDNISONE
     Dosage: 10 MG (7 DAYS)
  3. PREDNISONE. [Concomitant]
     Active Substance: PREDNISONE
     Dosage: 15 MG (7 DAYS)
  4. PREDNISONE. [Concomitant]
     Active Substance: PREDNISONE
     Dosage: 5 MG (7 DAYS)
  5. PREDNISONE. [Concomitant]
     Active Substance: PREDNISONE
     Dosage: 2.5 MG (7 DAYS)
  6. PENTASA [Concomitant]
     Active Substance: MESALAMINE
     Dosage: 3 G
  7. SALOFALK [MESALAZINE] [Concomitant]
     Active Substance: MESALAMINE
     Dosage: IF POSSIBLE, 3 OR 4 WEEKLY
  8. MASTICAL D [Concomitant]
     Dosage: 1 DF, 1X/DAY

REACTIONS (2)
  - Retinal vein thrombosis [Unknown]
  - Retinal vascular disorder [Unknown]

NARRATIVE: CASE EVENT DATE: 20200902
